FAERS Safety Report 26120571 (Version 1)
Quarter: 2025Q4

REPORT INFORMATION
  Report Type: Spontaneous
  Country: EU (occurrence: EU)
  Receive Date: 20251204
  Receipt Date: 20251204
  Transmission Date: 20260117
  Serious: Yes (Other)
  Sender: GENMAB
  Company Number: EU-ABBVIE-6570373

PATIENT
  Age: 82 Year
  Sex: Male

DRUGS (1)
  1. EPCORITAMAB [Suspect]
     Active Substance: EPCORITAMAB
     Indication: Diffuse large B-cell lymphoma
     Dosage: UNK, (4MG/0.8ML DOSE STRENGTH 48MG/0.8 MLSTEP-UP DOSE 1: 0.16 MG STEP-UP DOSE 2: 0.8 MG FULL DOSE: 4
     Route: 065

REACTIONS (1)
  - Lymphoma [Unknown]
